FAERS Safety Report 9121155 (Version 1)
Quarter: 2013Q1

REPORT INFORMATION
  Report Type: Spontaneous
  Country: RS (occurrence: RS)
  Receive Date: 20130226
  Receipt Date: 20130226
  Transmission Date: 20140127
  Serious: Yes (Hospitalization)
  Sender: FDA-Public Use
  Company Number: RS-MYLANLABS-2013S1003747

PATIENT
  Age: 63 Year
  Sex: Male

DRUGS (4)
  1. LITHIUM [Suspect]
     Dosage: 900MG PER DAY
     Route: 065
  2. MAPROTILINE [Suspect]
     Dosage: 125MG PER DAY
     Route: 065
  3. HALOPERIDOL [Suspect]
     Dosage: 4MG PER DAY
     Route: 065
  4. METFORMIN [Concomitant]
     Indication: DIABETES MELLITUS
     Dosage: 2000MG PER DAY
     Route: 048

REACTIONS (2)
  - Toxicity to various agents [Recovered/Resolved]
  - Renal failure [Recovered/Resolved]
